FAERS Safety Report 21655719 (Version 3)
Quarter: 2023Q1

REPORT INFORMATION
  Report Type: Spontaneous
  Country: US (occurrence: US)
  Receive Date: 20221129
  Receipt Date: 20230122
  Transmission Date: 20230417
  Serious: Yes (Hospitalization, Other)
  Sender: FDA-Public Use
  Company Number: US-Calliditas-2022CAL00535

PATIENT
  Age: 55 Year
  Sex: Male

DRUGS (9)
  1. TARPEYO [Suspect]
     Active Substance: BUDESONIDE
     Indication: IgA nephropathy
     Dosage: 16 MG (4 MG CAPSULES) ONCE DAILY
     Route: 048
     Dates: start: 20220618
  2. LOSARTAN [Concomitant]
     Active Substance: LOSARTAN
  3. DULOXETINE [Concomitant]
     Active Substance: DULOXETINE
  4. FARXIGA [Concomitant]
     Active Substance: DAPAGLIFLOZIN PROPANEDIOL
  5. KERENDIA [Concomitant]
     Active Substance: FINERENONE
  6. ROSUVASTATIN [Concomitant]
     Active Substance: ROSUVASTATIN
  7. FISH OIL [Concomitant]
     Active Substance: FISH OIL
  8. VITAMIN B12 [Concomitant]
     Active Substance: CYANOCOBALAMIN
  9. ZOLPIDEM [Concomitant]
     Active Substance: ZOLPIDEM TARTRATE
     Indication: Insomnia

REACTIONS (4)
  - Peripheral nerve lesion [Not Recovered/Not Resolved]
  - Fluid retention [Not Recovered/Not Resolved]
  - Condition aggravated [Not Recovered/Not Resolved]
  - Neuropathy peripheral [Not Recovered/Not Resolved]

NARRATIVE: CASE EVENT DATE: 20221119
